FAERS Safety Report 11400284 (Version 1)
Quarter: 2015Q3

REPORT INFORMATION
  Report Type: Spontaneous
  Country: US (occurrence: None)
  Receive Date: 20150819
  Receipt Date: 20150819
  Transmission Date: 20151125
  Serious: Yes (Other)
  Sender: FDA-Public Use
  Company Number: None

PATIENT
  Sex: Male

DRUGS (1)
  1. CAPECITABINE 150MG TEVA [Suspect]
     Active Substance: CAPECITABINE
     Indication: NEOPLASM
     Dosage: 1 TABLET
     Route: 048
     Dates: start: 20150323

REACTIONS (1)
  - Chemotherapy [None]
